FAERS Safety Report 11736544 (Version 2)
Quarter: 2016Q3

REPORT INFORMATION
  Report Type: Spontaneous
  Country: US (occurrence: US)
  Receive Date: 20151113
  Receipt Date: 20160907
  Transmission Date: 20161109
  Serious: Yes (Other)
  Sender: FDA-Public Use
  Company Number: US-JNJFOC-20151002947

PATIENT
  Age: 31 Year
  Sex: Female
  Weight: 59.88 kg

DRUGS (2)
  1. LEVAQUIN [Suspect]
     Active Substance: LEVOFLOXACIN
     Indication: ARTHROPOD BITE
     Dosage: VARYING DOSES OF 250MG AND 500 MG
     Route: 048
     Dates: start: 200811
  2. CIPRO [Suspect]
     Active Substance: CIPROFLOXACIN HYDROCHLORIDE
     Indication: URINARY TRACT INFECTION
     Dosage: VARYING DOSES OF 250MG AND 500 MG
     Route: 048
     Dates: start: 200909, end: 20150206

REACTIONS (3)
  - Neuropathy peripheral [Not Recovered/Not Resolved]
  - Off label use [Unknown]
  - Product use issue [Unknown]

NARRATIVE: CASE EVENT DATE: 200811
